FAERS Safety Report 6583529-X (Version None)
Quarter: 2010Q1

REPORT INFORMATION
  Report Type: 
  Country: None (occurrence: None)
  Receive Date: 20100216
  Receipt Date: 20100209
  Transmission Date: 20100710
  Serious: Yes (Death, Hospitalization, Other)
  Sender: FDA-Public Use
  Company Number: PHEH2010US01177

PATIENT
  Sex: Male
  Weight: 72.7 kg

DRUGS (13)
  1. EXJADE [Suspect]
     Indication: IRON OVERLOAD
     Dosage: 500 MG, QD
     Route: 048
     Dates: start: 20091211, end: 20091231
  2. ACYCLOVIR [Concomitant]
     Dosage: 400 MG, BID
     Route: 048
  3. LEVAQUIN [Concomitant]
     Dosage: 500 MG, QD
     Route: 048
  4. MAGNESIUM [Concomitant]
     Dosage: 400 MG, BID
     Route: 048
  5. METOPROLOL TARTRATE [Concomitant]
     Dosage: 12.5 MG, BID
     Route: 048
  6. NITRODERM [Concomitant]
     Dosage: 0.8 MG/H, QD
     Route: 048
  7. NITROGLYCERIN [Concomitant]
     Dosage: 0.4MG Q5 MINS PRN
     Route: 060
  8. NOXAFIL [Concomitant]
     Dosage: 200 MG, TID
     Route: 048
  9. RANEXA [Concomitant]
     Dosage: 500 MG, BID
     Route: 048
  10. ATARAX [Concomitant]
     Indication: PREMEDICATION
     Dosage: 25 MG, UNK
     Route: 048
  11. BENADRYL ^WARNER-LAMBERT^               /USA/ [Concomitant]
     Indication: PREMEDICATION
     Dosage: 25 MG, UNK
     Route: 042
  12. HYDROCHLOROTHIAZIDE [Concomitant]
     Indication: PREMEDICATION
     Dosage: 100 MG, UNK
     Route: 042
  13. ZANTAC [Concomitant]
     Indication: PREMEDICATION
     Dosage: 50 MG, UNK
     Route: 048

REACTIONS (13)
  - ALANINE AMINOTRANSFERASE INCREASED [None]
  - ASPARTATE AMINOTRANSFERASE INCREASED [None]
  - BLOOD LACTATE DEHYDROGENASE INCREASED [None]
  - CONFUSIONAL STATE [None]
  - DYSPNOEA [None]
  - FALL [None]
  - GAIT DISTURBANCE [None]
  - HAEMATOCRIT DECREASED [None]
  - HAEMOGLOBIN DECREASED [None]
  - MALIGNANT NEOPLASM PROGRESSION [None]
  - NEUTROPENIA [None]
  - OEDEMA PERIPHERAL [None]
  - PLATELET COUNT DECREASED [None]
